FAERS Safety Report 8225129-1 (Version None)
Quarter: 2012Q1

REPORT INFORMATION
  Report Type: 
  Country: None (occurrence: None)
  Receive Date: 20120321
  Receipt Date: 20120314
  Transmission Date: 20120608
  Serious: Yes (Hospitalization)
  Sender: FDA-Public Use
  Company Number: US-US-EMD SERONO, INC.-7117584

PATIENT
  Sex: Female

DRUGS (3)
  1. AMLODIPINE [Concomitant]
     Indication: HYPERTENSION
  2. REBIF [Suspect]
     Indication: MULTIPLE SCLEROSIS
     Route: 058
     Dates: start: 20111209, end: 20120307
  3. PROTONIX [Concomitant]
     Indication: GASTROOESOPHAGEAL REFLUX DISEASE

REACTIONS (6)
  - DIARRHOEA [None]
  - ANAEMIA [None]
  - DECREASED APPETITE [None]
  - RED BLOOD CELL COUNT ABNORMAL [None]
  - NAUSEA [None]
  - INFLUENZA LIKE ILLNESS [None]
